FAERS Safety Report 5517795-6 (Version None)
Quarter: 2007Q4

REPORT INFORMATION
  Report Type: 
  Country: None (occurrence: None)
  Receive Date: 20071113
  Receipt Date: 20071108
  Transmission Date: 20080405
  Serious: Yes (Death)
  Sender: FDA-Public Use
  Company Number: 2007US001986

PATIENT
  Sex: Female

DRUGS (1)
  1. VAPRISOL [Suspect]
     Indication: HYPONATRAEMIA
     Dosage: 20 MG, IV BOLUS
     Route: 040
     Dates: start: 20070101

REACTIONS (3)
  - CONDITION AGGRAVATED [None]
  - HYPONATRAEMIA [None]
  - NO THERAPEUTIC RESPONSE [None]
